FAERS Safety Report 8436309-4 (Version None)
Quarter: 2012Q2

REPORT INFORMATION
  Report Type: 
  Country: None (occurrence: None)
  Receive Date: 20120614
  Receipt Date: 20120602
  Transmission Date: 20120825
  Serious: Yes (Other)
  Sender: FDA-Public Use
  Company Number: DE-ELI_LILLY_AND_COMPANY-DE201206001561

PATIENT
  Age: 16 Year
  Sex: Male

DRUGS (2)
  1. STRATTERA [Suspect]
     Indication: ATTENTION DEFICIT/HYPERACTIVITY DISORDER
     Dosage: 1 DF, UNKNOWN
     Route: 048
     Dates: start: 20100101
  2. STRATTERA [Suspect]
     Dosage: 1 DF, UNKNOWN
     Route: 048
     Dates: start: 20110101

REACTIONS (1)
  - SYNCOPE [None]
